FAERS Safety Report 12358161 (Version 1)
Quarter: 2016Q2

REPORT INFORMATION
  Report Type: Spontaneous
  Country: US (occurrence: None)
  Receive Date: 20160511
  Receipt Date: 20160511
  Transmission Date: 20160815
  Serious: Yes (Life-Threatening, Other)
  Sender: FDA-Public Use
  Company Number: None

PATIENT
  Age: 55 Year
  Sex: Female
  Weight: 63.05 kg

DRUGS (12)
  1. CLOBETASOL PROPIONATE. [Concomitant]
     Active Substance: CLOBETASOL PROPIONATE
  2. CMPD DIDO [Concomitant]
  3. CYC [Concomitant]
  4. OMEPRAZOLE. [Concomitant]
     Active Substance: OMEPRAZOLE
  5. AMOXICILLIN. [Concomitant]
     Active Substance: AMOXICILLIN
  6. PATADAY [Concomitant]
     Active Substance: OLOPATADINE HYDROCHLORIDE
  7. LIDOCAINE PATCH [Concomitant]
     Active Substance: LIDOCAINE
  8. VALIUM [Concomitant]
     Active Substance: DIAZEPAM
  9. MULTIVITAMINS [Concomitant]
     Active Substance: VITAMINS
  10. SYSTONE [Concomitant]
  11. CLARITHROMYC 500MG TAB ZFD [Suspect]
     Active Substance: CLARITHROMYCIN
     Indication: HELICOBACTER GASTRITIS
     Dosage: 11-03-2016 12-03-2016 500MG TAB 28 TABLETS TWCIE DAILY FOR 14 DAYS BY MOUTH
     Route: 048
  12. LIDO [Concomitant]

REACTIONS (16)
  - Vomiting [None]
  - Malaise [None]
  - Dyspnoea [None]
  - Chest discomfort [None]
  - Cold sweat [None]
  - Feeding disorder [None]
  - Fear [None]
  - Asthenia [None]
  - Flushing [None]
  - Feeling hot [None]
  - Dizziness [None]
  - Abdominal discomfort [None]
  - Headache [None]
  - Tremor [None]
  - Speech disorder [None]
  - Dysstasia [None]
